FAERS Safety Report 7247123-X (Version None)
Quarter: 2011Q1

REPORT INFORMATION
  Report Type: 
  Country: None (occurrence: None)
  Receive Date: 20110127
  Receipt Date: 20100728
  Transmission Date: 20110831
  Serious: No
  Sender: FDA-Public Use
  Company Number: US-BAUSCH-2010BL004136

PATIENT
  Age: 60 Year
  Sex: Male
  Weight: 81 kg

DRUGS (8)
  1. ALAWAY [Suspect]
     Indication: HYPERMETROPIA
     Route: 047
     Dates: start: 20100710, end: 20100712
  2. ALAWAY [Suspect]
     Route: 047
     Dates: start: 20100712, end: 20100721
  3. ALAWAY [Suspect]
     Route: 047
     Dates: start: 20100712, end: 20100721
  4. ALAWAY [Suspect]
     Route: 047
     Dates: start: 20100710, end: 20100712
  5. ALAWAY [Suspect]
     Route: 047
     Dates: start: 20100710, end: 20100712
  6. ALAWAY [Suspect]
     Route: 047
     Dates: start: 20100712, end: 20100721
  7. ALAWAY [Suspect]
     Route: 047
     Dates: start: 20100712, end: 20100721
  8. ALAWAY [Suspect]
     Indication: CONJUNCTIVITIS ALLERGIC
     Route: 047
     Dates: start: 20100710, end: 20100712

REACTIONS (1)
  - DRUG INEFFECTIVE [None]
